FAERS Safety Report 15555345 (Version 1)
Quarter: 2018Q4

REPORT INFORMATION
  Report Type: Spontaneous
  Country: US (occurrence: US)
  Receive Date: 20181026
  Receipt Date: 20181026
  Transmission Date: 20190205
  Serious: Yes (Other)
  Sender: FDA-Public Use
  Company Number: None

PATIENT
  Age: 49 Year
  Sex: Female
  Weight: 141.75 kg

DRUGS (11)
  1. GABAPENTIN. [Concomitant]
     Active Substance: GABAPENTIN
  2. SERTRALINE [Concomitant]
     Active Substance: SERTRALINE HYDROCHLORIDE
  3. VALSARTAN. [Concomitant]
     Active Substance: VALSARTAN
  4. IBUPROPHEN [Concomitant]
     Active Substance: IBUPROFEN
  5. ACETAMINOPHEN. [Concomitant]
     Active Substance: ACETAMINOPHEN
  6. BACLOFEN. [Suspect]
     Active Substance: BACLOFEN
  7. OMEPRAZOLE. [Concomitant]
     Active Substance: OMEPRAZOLE
  8. REBIF [Concomitant]
     Active Substance: INTERFERON BETA-1A
  9. MODAFINIL. [Concomitant]
     Active Substance: MODAFINIL
  10. CLINDAMYCIN. [Suspect]
     Active Substance: CLINDAMYCIN
     Indication: INFECTION PROPHYLAXIS
     Dosage: ?          QUANTITY:1 CAPSULE(S);?
     Route: 048
     Dates: start: 20181023, end: 20181026
  11. D [Concomitant]

REACTIONS (4)
  - Fatigue [None]
  - Hypopnoea [None]
  - Asthenia [None]
  - Impaired work ability [None]

NARRATIVE: CASE EVENT DATE: 20181025
